FAERS Safety Report 5457303-1 (Version None)
Quarter: 2007Q3

REPORT INFORMATION
  Report Type: 
  Country: None (occurrence: None)
  Receive Date: 20070918
  Receipt Date: 20070702
  Transmission Date: 20080115
  Serious: No
  Sender: FDA-Public Use
  Company Number: US-ASTRAZENECA-2007UW01936

PATIENT
  Age: 326 Month
  Sex: Female
  Weight: 152.3 kg

DRUGS (25)
  1. SEROQUEL [Suspect]
     Indication: SCHIZOPHRENIA
     Route: 048
     Dates: start: 20000113, end: 20030804
  2. HALDOL [Concomitant]
     Dates: start: 20000113, end: 20000621
  3. HALDOL [Concomitant]
     Dosage: 1-2 MG
     Dates: start: 20000817, end: 20011212
  4. RISPERDAL [Concomitant]
     Dosage: 1 TO 2 MG
     Dates: start: 20000817, end: 20011212
  5. ZOLOFT [Concomitant]
  6. SYNTHROID [Concomitant]
  7. NAPROXEN [Concomitant]
  8. CEPHALEXIN [Concomitant]
  9. TERAZOL 7 [Concomitant]
  10. DIFLUCAN [Concomitant]
  11. LOTRISONE [Concomitant]
  12. LEVOTHYROXINE SODIUM [Concomitant]
  13. NYSTATIN [Concomitant]
  14. ALBUTEROL [Concomitant]
  15. TRIMOX [Concomitant]
  16. GUIATUSSIN AC [Concomitant]
  17. IBUPROFEN [Concomitant]
  18. PAXIL [Concomitant]
  19. NEO/POLYMYXIN/HC [Concomitant]
  20. ALLEGRA [Concomitant]
  21. TOBRAMYCIN [Concomitant]
  22. ATENOLOL [Concomitant]
  23. DEPO-PROVERA [Concomitant]
  24. FLAGYL [Concomitant]
  25. LISINOPRIL [Concomitant]

REACTIONS (3)
  - BLOOD CHOLESTEROL INCREASED [None]
  - THYROID DISORDER [None]
  - TYPE 2 DIABETES MELLITUS [None]
